FAERS Safety Report 8233199-X (Version None)
Quarter: 2012Q1

REPORT INFORMATION
  Report Type: 
  Country: None (occurrence: None)
  Receive Date: 20120326
  Receipt Date: 20120319
  Transmission Date: 20120608
  Serious: No
  Sender: FDA-Public Use
  Company Number: US-PFIZER INC-2012053881

PATIENT
  Sex: Female

DRUGS (4)
  1. E-MYCIN [Suspect]
     Dosage: UNK
     Route: 048
  2. PREDNISONE [Suspect]
     Dosage: UNK
  3. CIPROFLOXACIN [Suspect]
     Dosage: UNK
  4. DOXYCYCLINE HYCLATE [Suspect]
     Dosage: UNK

REACTIONS (1)
  - DRUG HYPERSENSITIVITY [None]
